FAERS Safety Report 9468856 (Version 1)
Quarter: 2013Q3

REPORT INFORMATION
  Report Type: Spontaneous
  Country: GB (occurrence: GB)
  Receive Date: 20130821
  Receipt Date: 20130821
  Transmission Date: 20140515
  Serious: Yes (Other)
  Sender: FDA-Public Use
  Company Number: GB-ACTAVIS-2013-14828

PATIENT
  Sex: Female

DRUGS (1)
  1. DICLOFENAC (UNKNOWN) [Suspect]
     Indication: OSTEOARTHRITIS
     Dosage: 75 MG, BID
     Route: 048
     Dates: start: 20130114

REACTIONS (1)
  - Postmenopausal haemorrhage [Unknown]
